FAERS Safety Report 12243852 (Version 4)
Quarter: 2016Q2

REPORT INFORMATION
  Report Type: Spontaneous
  Country: US (occurrence: US)
  Receive Date: 20160406
  Receipt Date: 20160615
  Transmission Date: 20160815
  Serious: No
  Sender: FDA-Public Use
  Company Number: US-PFIZER INC-2016154876

PATIENT
  Age: 71 Year
  Sex: Female

DRUGS (11)
  1. NEURONTIN [Suspect]
     Active Substance: GABAPENTIN
     Dosage: UNK
  2. ACETAMINOPHEN\HYDROCODONE BITARTRATE [Concomitant]
     Active Substance: ACETAMINOPHEN\HYDROCODONE BITARTRATE
     Dosage: (HYDROCODONE BITARTRATE-7.5MG,PARACETAMOL-325MG) 3 TIMES A DAY AS NEEDED
     Route: 048
     Dates: start: 20160121
  3. MELATONIN [Concomitant]
     Active Substance: MELATONIN
     Dosage: 5 MG, 1X/DAY
     Route: 048
  4. GABAPENTIN. [Suspect]
     Active Substance: GABAPENTIN
     Indication: POLYNEUROPATHY
     Dosage: 300 MG, 2X/DAY
     Route: 048
     Dates: start: 20131208, end: 20151203
  5. LYRICA [Concomitant]
     Active Substance: PREGABALIN
     Dosage: 75 MG, 2X/DAY(FOR 90 DAYS)
     Route: 048
     Dates: start: 20160121
  6. OMEPRAZOLE. [Concomitant]
     Active Substance: OMEPRAZOLE
     Dosage: 20 MG, 1X/DAY(BEFORE A MEAL FOR 30 DAYS)
     Route: 048
     Dates: start: 20160307
  7. CYMBALTA [Concomitant]
     Active Substance: DULOXETINE HYDROCHLORIDE
     Dosage: 30 MG, 2X/DAY
     Route: 048
     Dates: start: 20160121
  8. ESTRADIOL. [Concomitant]
     Active Substance: ESTRADIOL
     Dosage: 1 MG, 1X/DAY
     Route: 048
     Dates: start: 20150715
  9. HYDROCHLOROTHIAZIDE. [Concomitant]
     Active Substance: HYDROCHLOROTHIAZIDE
     Dosage: 12.5 MG, 1X/DAY
     Route: 048
     Dates: start: 20160307
  10. HYDROCODONE [Concomitant]
     Active Substance: HYDROCODONE
     Dosage: UNK
  11. XANAX [Concomitant]
     Active Substance: ALPRAZOLAM
     Dosage: 0.5 MG, 3X/DAY
     Route: 048
     Dates: start: 20151203

REACTIONS (13)
  - Product use issue [Unknown]
  - Somnolence [Recovered/Resolved]
  - Pain in extremity [Unknown]
  - Mental disorder [Recovered/Resolved]
  - Insomnia [Unknown]
  - Influenza like illness [Unknown]
  - Cough [Unknown]
  - Pain [Unknown]
  - Feeling abnormal [Recovered/Resolved]
  - Asthenia [Unknown]
  - Thinking abnormal [Recovered/Resolved]
  - Oropharyngeal pain [Unknown]
  - Drug intolerance [Unknown]

NARRATIVE: CASE EVENT DATE: 20131208
